FAERS Safety Report 19354388 (Version 3)
Quarter: 2022Q2

REPORT INFORMATION
  Report Type: Spontaneous
  Country: US (occurrence: US)
  Receive Date: 20210531
  Receipt Date: 20220616
  Transmission Date: 20220721
  Serious: Yes (Other)
  Sender: FDA-Public Use
  Company Number: US-PURDUE-USA-2020-0157168

PATIENT
  Sex: Male

DRUGS (2)
  1. OXYCONTIN [Suspect]
     Active Substance: OXYCODONE HYDROCHLORIDE
     Indication: Product used for unknown indication
     Dosage: 40 MG, (FOR 12-14 YEARS)
     Route: 048
  2. OXYCONTIN [Suspect]
     Active Substance: OXYCODONE HYDROCHLORIDE
     Dosage: 80 MG, (FOR 12-14 YEARS)
     Route: 048

REACTIONS (4)
  - Drug dependence [Recovering/Resolving]
  - Depression [Unknown]
  - Nightmare [Not Recovered/Not Resolved]
  - Unevaluable event [Unknown]
